FAERS Safety Report 6793401-8 (Version None)
Quarter: 2010Q2

REPORT INFORMATION
  Report Type: 
  Country: None (occurrence: None)
  Receive Date: 20100624
  Receipt Date: 20100205
  Transmission Date: 20101027
  Serious: Yes (Other)
  Sender: FDA-Public Use
  Company Number: US-MYLANLABS-2010S1002070

PATIENT
  Age: 20 Year
  Sex: Female
  Weight: 56.7 kg

DRUGS (4)
  1. CLOZAPINE [Suspect]
     Indication: SCHIZOPHRENIA
     Route: 048
     Dates: start: 20091001, end: 20100201
  2. CLOZAPINE [Suspect]
     Route: 048
     Dates: start: 20100203
  3. COGENTIN [Concomitant]
     Indication: SCHIZOPHRENIA
     Route: 048
  4. ZYPREXA [Concomitant]
     Indication: SCHIZOPHRENIA
     Route: 048

REACTIONS (2)
  - GRANULOCYTOPENIA [None]
  - LEUKOPENIA [None]
